FAERS Safety Report 19533738 (Version 1)
Quarter: 2021Q3

REPORT INFORMATION
  Report Type: Spontaneous
  Country: IT (occurrence: IT)
  Receive Date: 20210713
  Receipt Date: 20210713
  Transmission Date: 20211014
  Serious: Yes (Other)
  Sender: FDA-Public Use
  Company Number: IT-MYLANLABS-2021M1040592

PATIENT
  Age: 27 Year
  Sex: Male
  Weight: 61 kg

DRUGS (1)
  1. COPEMYLTRI [Suspect]
     Active Substance: GLATIRAMER ACETATE
     Indication: MULTIPLE SCLEROSIS
     Dosage: 40 MILLIGRAM, 3XW
     Route: 058
     Dates: start: 20210501, end: 20210601

REACTIONS (11)
  - Asthenia [Recovering/Resolving]
  - Palpitations [Unknown]
  - Chills [Unknown]
  - Migraine [Unknown]
  - Tachycardia [Unknown]
  - Hypertensive crisis [Unknown]
  - Mental disorder [Unknown]
  - Hypersensitivity [Recovering/Resolving]
  - Treatment noncompliance [Unknown]
  - Nausea [Unknown]
  - Pyrexia [Unknown]

NARRATIVE: CASE EVENT DATE: 20210601
